FAERS Safety Report 16280809 (Version 1)
Quarter: 2019Q2

REPORT INFORMATION
  Report Type: Spontaneous
  Country: US (occurrence: US)
  Receive Date: 20190507
  Receipt Date: 20190507
  Transmission Date: 20190711
  Serious: No
  Sender: FDA-Public Use
  Company Number: US-BEH-2019101987

PATIENT
  Age: 45 Year
  Sex: Female

DRUGS (2)
  1. HIZENTRA [Suspect]
     Active Substance: HUMAN IMMUNOGLOBULIN G
     Indication: CHRONIC INFLAMMATORY DEMYELINATING POLYRADICULONEUROPATHY
     Dosage: 10 G, QW
     Route: 058
     Dates: start: 20190423
  2. HIZENTRA [Suspect]
     Active Substance: HUMAN IMMUNOGLOBULIN G
     Dosage: 8 G, QW
     Route: 058
     Dates: start: 20190423

REACTIONS (4)
  - Infusion site erythema [Unknown]
  - Infusion site swelling [Unknown]
  - Infusion site pain [Unknown]
  - Infusion site irritation [Unknown]

NARRATIVE: CASE EVENT DATE: 20190423
